FAERS Safety Report 6201282-6 (Version None)
Quarter: 2009Q2

REPORT INFORMATION
  Report Type: 
  Country: None (occurrence: None)
  Receive Date: 20090526
  Receipt Date: 20090513
  Transmission Date: 20091009
  Serious: Yes (Hospitalization, Disabling)
  Sender: FDA-Public Use
  Company Number: GB-ROCHE-417444

PATIENT
  Sex: Female
  Weight: 47.5 kg

DRUGS (8)
  1. CAPECITABINE [Suspect]
     Indication: COLON CANCER
     Dosage: ON DAYS ONE TO FOURTEEN OF EACH THREE WEEK CYCLE
     Route: 048
     Dates: start: 20050803, end: 20050914
  2. CAPECITABINE [Suspect]
     Dosage: ON DAYS ONE TO FOURTEEN OF EACH THREE WEEK CYCLE
     Route: 048
     Dates: start: 20050928
  3. BEVACIZUMAB [Suspect]
     Indication: COLON CANCER
     Dosage: DOSAGE FORM REPORTED AS INFUSION.
     Route: 042
     Dates: start: 20050803, end: 20050914
  4. BEVACIZUMAB [Suspect]
     Dosage: DOSAGE FORM REPORTED AS INFUSION.
     Route: 042
     Dates: start: 20050928
  5. OXALIPLATIN [Suspect]
     Indication: COLON CANCER
     Dosage: DOSAGE FORM REPORTED AS INFUSION.
     Route: 042
     Dates: start: 20050803, end: 20050914
  6. OXALIPLATIN [Suspect]
     Dosage: DOSAGE FORM REPORTED AS INFUSION.
     Route: 042
     Dates: start: 20050928
  7. ACETAMINOPHEN W/ CODEINE [Concomitant]
  8. DICLOFENAC SODIUM [Concomitant]

REACTIONS (2)
  - DIARRHOEA [None]
  - PERIPHERAL SENSORY NEUROPATHY [None]
